FAERS Safety Report 4843634-2 (Version None)
Quarter: 2005Q4

REPORT INFORMATION
  Report Type: 
  Country: None (occurrence: None)
  Receive Date: 20051202
  Receipt Date: 20051123
  Transmission Date: 20060501
  Serious: Yes (Other)
  Sender: FDA-Public Use
  Company Number: US-JNJFOC-20051106555

PATIENT
  Sex: Female

DRUGS (1)
  1. FENTANYL [Suspect]
     Route: 062
     Dates: start: 20050501

REACTIONS (6)
  - DEPRESSION [None]
  - DRY MOUTH [None]
  - FEELING COLD [None]
  - INSOMNIA [None]
  - SUICIDAL IDEATION [None]
  - THERAPEUTIC RESPONSE DECREASED [None]
